FAERS Safety Report 5858630-6 (Version None)
Quarter: 2008Q3

REPORT INFORMATION
  Report Type: 
  Country: None (occurrence: None)
  Receive Date: 20080818
  Receipt Date: 20080709
  Transmission Date: 20090109
  Serious: No
  Sender: FDA-Public Use
  Company Number: WAES 0807USA01663

PATIENT
  Age: 47 Year
  Sex: Male

DRUGS (7)
  1. JANUVIA [Suspect]
     Indication: DIABETES MELLITUS
     Dosage: 100 MG/DAILY/PO
     Route: 048
     Dates: start: 20080101
  2. CRESTOR [Concomitant]
  3. PLAVIX [Concomitant]
  4. TOPROL-XL [Concomitant]
  5. VYTORIN [Concomitant]
  6. LISINOPRIL [Concomitant]
  7. OMEGA-3 MARINE TRIGLYCERIDES [Concomitant]

REACTIONS (1)
  - SKIN ODOUR ABNORMAL [None]
